FAERS Safety Report 7138055-6 (Version None)
Quarter: 2010Q4

REPORT INFORMATION
  Report Type: 
  Country: None (occurrence: None)
  Receive Date: 20101206
  Receipt Date: 20101124
  Transmission Date: 20110411
  Serious: Yes (Other)
  Sender: FDA-Public Use
  Company Number: DE-PFIZER INC-DE-WYE-G05337210

PATIENT
  Age: 31 Year
  Sex: Female
  Weight: 58 kg

DRUGS (2)
  1. TREVILOR RETARD [Suspect]
     Indication: DEPRESSION
     Dosage: 75 MG, 1X/DAY
     Route: 048
     Dates: start: 20080301
  2. TREVILOR RETARD [Suspect]
     Dosage: 75 MG, 1X/DAY
     Route: 048

REACTIONS (6)
  - DRUG EXPOSURE DURING PREGNANCY [None]
  - DRUG WITHDRAWAL SYNDROME [None]
  - LABOUR COMPLICATION [None]
  - NERVOUSNESS [None]
  - OPERATIVE HAEMORRHAGE [None]
  - RASH [None]
